FAERS Safety Report 20517157 (Version 1)
Quarter: 2022Q1

REPORT INFORMATION
  Report Type: Spontaneous
  Country: DE (occurrence: DE)
  Receive Date: 20220225
  Receipt Date: 20220225
  Transmission Date: 20220423
  Serious: Yes (Other)
  Sender: FDA-Public Use
  Company Number: DE-PFIZER INC-202101867601

PATIENT
  Age: 40 Year
  Sex: Female

DRUGS (9)
  1. OCREVUS [Suspect]
     Active Substance: OCRELIZUMAB
     Indication: Relapsing-remitting multiple sclerosis
     Dosage: FREQUENCY: 202 DAYS, I.V. APPLICATION
     Route: 065
     Dates: start: 20210323
  2. COMIRNATY [Suspect]
     Active Substance: TOZINAMERAN
     Indication: COVID-19 immunisation
     Dosage: DOSE 2, SINGLE
     Route: 065
     Dates: start: 20211124, end: 20211124
  3. SODIUM PROPIONATE [Concomitant]
     Active Substance: SODIUM PROPIONATE
     Dosage: UNK, 2X/DAY
  4. BUDESONIDE [Concomitant]
     Active Substance: BUDESONIDE
     Dosage: 1 HUB (1-0-1 AND B.B 1-0-0),
  5. ALBUTEROL [Concomitant]
     Active Substance: ALBUTEROL
     Dosage: 2 HUB B.B
  6. VITAMIN B COMPLEX [Concomitant]
     Active Substance: CYANOCOBALAMIN\DEXPANTHENOL\NIACINAMIDE\PYRIDOXINE HYDROCHLORIDE\RIBOFLAVIN 5^-PHOSPHATE SODIUM\THIA
     Dosage: FORTE (1-0-0),
  7. CIPRALEX [Concomitant]
     Active Substance: ESCITALOPRAM OXALATE
     Dosage: UNK, 1X/DAY
  8. CHOLECALCIFEROL [Concomitant]
     Active Substance: CHOLECALCIFEROL
     Dosage: UNK UNK, WEEKLY
  9. ETHINYL ESTRADIOL\LEVONORGESTREL [Concomitant]
     Active Substance: ETHINYL ESTRADIOL\LEVONORGESTREL
     Dosage: 20 (1-0-0),

REACTIONS (7)
  - Sleep disorder [Not Recovered/Not Resolved]
  - Nausea [Recovered/Resolved]
  - Fatigue [Not Recovered/Not Resolved]
  - Cardiovascular disorder [Recovered/Resolved]
  - Headache [Recovered/Resolved]
  - Inappropriate schedule of product administration [Unknown]
  - Restless legs syndrome [Not Recovered/Not Resolved]

NARRATIVE: CASE EVENT DATE: 20211101
